FAERS Safety Report 18186714 (Version 1)
Quarter: 2020Q3

REPORT INFORMATION
  Report Type: Spontaneous
  Country: US (occurrence: US)
  Receive Date: 20200824
  Receipt Date: 20200824
  Transmission Date: 20201103
  Serious: No
  Sender: FDA-Public Use
  Company Number: None

PATIENT
  Age: 73 Year
  Sex: Male
  Weight: 76.39 kg

DRUGS (3)
  1. DEXAMETHASONE 6 MG IV DAILY [Concomitant]
     Dates: start: 20200813
  2. REMDESIVIR. [Suspect]
     Active Substance: REMDESIVIR
     Indication: COVID-19
     Route: 042
     Dates: start: 20200815, end: 20200818
  3. APIXABAN 5 MG [Concomitant]
     Active Substance: APIXABAN
     Dates: start: 20200812

REACTIONS (2)
  - General physical health deterioration [None]
  - Liver function test increased [None]

NARRATIVE: CASE EVENT DATE: 20200819
